FAERS Safety Report 7166534-4 (Version None)
Quarter: 2010Q4

REPORT INFORMATION
  Report Type: 
  Country: None (occurrence: None)
  Receive Date: 20101203
  Receipt Date: 20101119
  Transmission Date: 20110411
  Serious: Yes (Other)
  Sender: FDA-Public Use
  Company Number: 010676

PATIENT
  Age: 46 Year
  Sex: Female

DRUGS (3)
  1. VIMPAT [Suspect]
     Indication: PARTIAL SEIZURES
     Dosage: (DOSE INCREASED BY 100 MG/WEEK. MAXIMUM DOSE; 300 MG.)
     Dates: start: 20090318, end: 20091207
  2. OXCARBAZEPINE [Concomitant]
  3. CLOBAZAM [Concomitant]

REACTIONS (3)
  - DEMENTIA [None]
  - FATIGUE [None]
  - PSYCHOTIC DISORDER [None]
